FAERS Safety Report 24270464 (Version 1)
Quarter: 2024Q3

REPORT INFORMATION
  Report Type: Spontaneous
  Country: US (occurrence: US)
  Receive Date: 20240830
  Receipt Date: 20240830
  Transmission Date: 20241016
  Serious: No
  Sender: MERCK
  Company Number: US-009507513-2408USA009000

PATIENT
  Sex: Male

DRUGS (3)
  1. CUBICIN [Suspect]
     Active Substance: DAPTOMYCIN
     Indication: Cutibacterium acnes infection
     Dosage: UNK
     Route: 042
  2. CUBICIN [Suspect]
     Active Substance: DAPTOMYCIN
     Indication: Staphylococcal infection
  3. CUBICIN [Suspect]
     Active Substance: DAPTOMYCIN
     Indication: Fracture nonunion

REACTIONS (1)
  - Product use in unapproved indication [Unknown]
